FAERS Safety Report 15232416 (Version 2)
Quarter: 2018Q3

REPORT INFORMATION
  Report Type: Spontaneous
  Country: JP (occurrence: JP)
  Receive Date: 20180802
  Receipt Date: 20180822
  Transmission Date: 20181010
  Serious: Yes (Hospitalization)
  Sender: FDA-Public Use
  Company Number: JP-BAYER-2018-144303

PATIENT
  Age: 79 Year
  Sex: Male

DRUGS (6)
  1. VOGLIBOSE [Suspect]
     Active Substance: VOGLIBOSE
  2. CRESTOR [Suspect]
     Active Substance: ROSUVASTATIN CALCIUM
  3. CANDESARTAN. [Suspect]
     Active Substance: CANDESARTAN
  4. BAYASPIRIN 100 MG [Suspect]
     Active Substance: ASPIRIN
     Dosage: 100 MG, QD
     Route: 048
     Dates: end: 201807
  5. AMARYL [Suspect]
     Active Substance: GLIMEPIRIDE
  6. VILDAGLIPTIN [Suspect]
     Active Substance: VILDAGLIPTIN

REACTIONS (2)
  - Duodenal ulcer [Not Recovered/Not Resolved]
  - Haematemesis [Not Recovered/Not Resolved]

NARRATIVE: CASE EVENT DATE: 20180719
